FAERS Safety Report 9060211 (Version 1)
Quarter: 2013Q2

REPORT INFORMATION
  Report Type: Spontaneous
  Country: US (occurrence: None)
  Receive Date: 20130206
  Receipt Date: 20130206
  Transmission Date: 20140414
  Serious: Yes (Other)
  Sender: FDA-Public Use
  Company Number: None

PATIENT
  Age: 8 Year
  Sex: Male

DRUGS (1)
  1. CYSTADANE [Suspect]
     Indication: HOMOCYSTINURIA

REACTIONS (3)
  - Gastrointestinal disorder [None]
  - Abdominal discomfort [None]
  - Nausea [None]
